FAERS Safety Report 16623584 (Version 2)
Quarter: 2019Q3

REPORT INFORMATION
  Report Type: Report from Study
  Country: CA (occurrence: CA)
  Receive Date: 20190724
  Receipt Date: 20190927
  Transmission Date: 20191004
  Serious: Yes (Hospitalization)
  Sender: FDA-Public Use
  Company Number: CA-TAKEDA-2018TUS028196

PATIENT
  Age: 5 Year
  Sex: Male

DRUGS (10)
  1. METHOTREXATE. [Concomitant]
     Active Substance: METHOTREXATE
     Dosage: 7.5 MILLIGRAM, 1/WEEK
     Route: 058
  2. NPLATE [Concomitant]
     Active Substance: ROMIPLOSTIM
     Dosage: 0.37 MILLILITER, 1/WEEK
     Route: 058
  3. PENTASA [Concomitant]
     Active Substance: MESALAMINE
     Dosage: UNK UNK, QD
     Route: 048
  4. SOLU-MEDROL [Concomitant]
     Active Substance: METHYLPREDNISOLONE SODIUM SUCCINATE
     Dosage: 20 MILLIGRAM, BID
     Route: 042
     Dates: start: 20180911
  5. D CALCIUM [Concomitant]
     Dosage: UNK
  6. FOLIC ACID. [Concomitant]
     Active Substance: FOLIC ACID
     Dosage: 5 MILLIGRAM, QD
     Route: 048
  7. PREDNISONE. [Concomitant]
     Active Substance: PREDNISONE
     Dosage: UNK
  8. VEDOLIZUMAB [Suspect]
     Active Substance: VEDOLIZUMAB
     Indication: CROHN^S DISEASE
     Dosage: 140 MILLIGRAM
     Route: 042
     Dates: start: 20180924
  9. VEDOLIZUMAB [Suspect]
     Active Substance: VEDOLIZUMAB
     Dosage: 200 MILLIGRAM
     Route: 042
     Dates: start: 20190524
  10. FLAGYL [Concomitant]
     Active Substance: METRONIDAZOLE\METRONIDAZOLE HYDROCHLORIDE
     Dosage: UNK
     Route: 048
     Dates: start: 20180910

REACTIONS (3)
  - Off label use [Unknown]
  - Therapeutic reaction time decreased [Unknown]
  - Crohn^s disease [Unknown]

NARRATIVE: CASE EVENT DATE: 20180924
